FAERS Safety Report 5674001-X (Version None)
Quarter: 2008Q1

REPORT INFORMATION
  Report Type: 
  Country: None (occurrence: None)
  Receive Date: 20080320
  Receipt Date: 20080310
  Transmission Date: 20080703
  Serious: Yes (Other)
  Sender: FDA-Public Use
  Company Number: US-BAYER-200816520NA

PATIENT
  Age: 18 Year
  Sex: Male

DRUGS (1)
  1. ULTRAVIST 300 SINGLE DOSE VIAL [Suspect]
     Indication: LOCAL SWELLING
     Route: 042
     Dates: start: 20080306, end: 20080306

REACTIONS (3)
  - EYE PRURITUS [None]
  - THROAT TIGHTNESS [None]
  - URTICARIA [None]
